FAERS Safety Report 5589823-3 (Version None)
Quarter: 2008Q1

REPORT INFORMATION
  Report Type: 
  Country: None (occurrence: None)
  Receive Date: 20080110
  Receipt Date: 20080110
  Transmission Date: 20080703
  Serious: Yes (Disabling)
  Sender: FDA-Public Use
  Company Number: None

PATIENT
  Age: 91 Year
  Sex: Male
  Weight: 87.5442 kg

DRUGS (6)
  1. PLETAL [Suspect]
     Indication: DEEP VEIN THROMBOSIS
     Dosage: 100 MG  BID  PO
     Route: 048
     Dates: start: 20060101, end: 20060109
  2. GABAPENTIN [Concomitant]
  3. GLIPIZIDE [Concomitant]
  4. AVAPRO [Concomitant]
  5. FUROSEMIDE [Concomitant]
  6. LEVAQUIN [Concomitant]

REACTIONS (1)
  - THROMBOCYTOPENIA [None]
